FAERS Safety Report 24081801 (Version 1)
Quarter: 2024Q3

REPORT INFORMATION
  Report Type: Report from Study
  Country: US (occurrence: US)
  Receive Date: 20240712
  Receipt Date: 20240712
  Transmission Date: 20241017
  Serious: Yes (Death)
  Sender: ABBVIE
  Company Number: US-ABBVIE-5835753

PATIENT
  Sex: Female

DRUGS (3)
  1. CREON [Suspect]
     Active Substance: PANCRELIPASE AMYLASE\PANCRELIPASE LIPASE\PANCRELIPASE PROTEASE
     Indication: Dyspepsia
     Dosage: 3 CAPS PER MEAL, THEN WENT TO 2 CAPSULES. ABOUT 6 DAILY TOTAL
     Route: 048
     Dates: start: 202405
  2. HYDROCODONE [Concomitant]
     Active Substance: HYDROCODONE
     Indication: Pain
     Dates: start: 202405
  3. OXYCODONE [Concomitant]
     Active Substance: OXYCODONE
     Indication: Pain
     Dates: start: 20240703

REACTIONS (2)
  - Pancreatic carcinoma [Fatal]
  - Diarrhoea [Unknown]

NARRATIVE: CASE EVENT DATE: 20240101
